FAERS Safety Report 5800389-2 (Version None)
Quarter: 2008Q3

REPORT INFORMATION
  Report Type: 
  Country: None (occurrence: None)
  Receive Date: 20080703
  Receipt Date: 20080626
  Transmission Date: 20090109
  Serious: Yes (Hospitalization, Other)
  Sender: FDA-Public Use
  Company Number: US-MERCK-0708USA00145

PATIENT
  Age: 66 Year
  Sex: Female

DRUGS (5)
  1. FOSAMAX [Suspect]
     Indication: OSTEOPOROSIS
     Route: 048
     Dates: start: 20030922, end: 20060601
  2. FOSAMAX [Suspect]
     Route: 048
     Dates: start: 20060101
  3. OMEPRAZOLE [Concomitant]
     Indication: ULCER
     Route: 065
     Dates: start: 20030228
  4. OXYCONTIN [Concomitant]
     Indication: PAIN
     Route: 065
     Dates: start: 19980730
  5. OXYCODONE [Concomitant]
     Indication: PAIN
     Route: 065
     Dates: start: 20030121

REACTIONS (5)
  - BACK PAIN [None]
  - MIGRAINE [None]
  - OBSTRUCTION GASTRIC [None]
  - OSTEONECROSIS [None]
  - VOMITING [None]
